FAERS Safety Report 8580524-6 (Version None)
Quarter: 2012Q3

REPORT INFORMATION
  Report Type: 
  Country: None (occurrence: None)
  Receive Date: 20120808
  Receipt Date: 20120807
  Transmission Date: 20120928
  Serious: Yes (Hospitalization)
  Sender: FDA-Public Use
  Company Number: US-AMGEN-USACT2010005816

PATIENT
  Age: 64 Year
  Sex: Female

DRUGS (18)
  1. DUONEB [Concomitant]
  2. VITAMIN C                          /00008001/ [Concomitant]
  3. CINNAMON [Concomitant]
     Dosage: UNK UNK, QD
  4. NEPRO [Concomitant]
  5. LEVOXYL [Concomitant]
  6. LEVAQUIN [Concomitant]
     Dosage: 500 MG, QD
  7. SENOKOT [Concomitant]
     Dosage: 30 MG, UNK
  8. COLACE [Concomitant]
  9. LACTOBACILLUS ACIDOPHILUS [Concomitant]
  10. AVAPRO [Concomitant]
  11. NOVOLOG [Concomitant]
     Dosage: UNK UNK, TID
  12. FLONASE [Concomitant]
     Route: 045
  13. RENAGEL [Concomitant]
     Dosage: 800 MG, TID
  14. INSULIN [Concomitant]
     Dosage: UNK UNK, PRN
  15. TYLENOL (CAPLET) [Concomitant]
     Dosage: UNK UNK, PRN
  16. CINACALCET HYDROCHLORIDE [Suspect]
     Indication: HYPERPARATHYROIDISM SECONDARY
     Dosage: UNK
     Dates: start: 20071024
  17. SYNTHROID [Concomitant]
     Dosage: 200 MUG, UNK
     Route: 048
  18. NORVASC [Concomitant]
     Dosage: 10 MG, QD

REACTIONS (2)
  - GASTROENTERITIS [None]
  - PLEURAL EFFUSION [None]
